FAERS Safety Report 10210547 (Version 1)
Quarter: 2014Q2

REPORT INFORMATION
  Report Type: Spontaneous
  Country: US (occurrence: None)
  Receive Date: 20140528
  Receipt Date: 20140528
  Transmission Date: 20141212
  Serious: Yes (Death, Hospitalization)
  Sender: FDA-Public Use
  Company Number: USW201405-000102

PATIENT
  Age: 83 Year
  Sex: Male
  Weight: 83.46 kg

DRUGS (10)
  1. APOKYN [Suspect]
     Indication: PARKINSON^S DISEASE
     Route: 058
     Dates: start: 201012
  2. AVODART (DUTASTERIDE) (DUTASTERIDE) [Concomitant]
  3. FLOMEX (FLUCONAZOLE) (FLUCONAZOLE) [Concomitant]
  4. PERCOPA (CARBIDOPA, LEVODOPA) (CARBIDOPA, LEVODOPA) [Concomitant]
  5. AZILECT (RASAGILINE) (RASAGILINE) [Concomitant]
  6. MOBIC [Concomitant]
  7. HYOSCYAMINE (HYOSCYAMINE) (HYOSCYAMINE) [Concomitant]
  8. PRILOSEC (OMEPRAZOLE) (OMEPRAZLE) [Concomitant]
  9. SEROQUEL (QUETIAPINE) (QUETIAPINE) [Concomitant]
  10. ARICEPT [Concomitant]

REACTIONS (4)
  - Dyspnoea [None]
  - Heart rate irregular [None]
  - Pleural effusion [None]
  - Cardiac disorder [None]
